FAERS Safety Report 14029393 (Version 1)
Quarter: 2017Q4

REPORT INFORMATION
  Report Type: Spontaneous
  Country: US (occurrence: US)
  Receive Date: 20171002
  Receipt Date: 20171002
  Transmission Date: 20180321
  Serious: No
  Sender: FDA-Public Use
  Company Number: US-JAZZ-2017-US-011001

PATIENT
  Age: 46 Year
  Sex: Female

DRUGS (43)
  1. THEOPHYLLINE [Concomitant]
     Active Substance: THEOPHYLLINE ANHYDROUS
  2. BREO ELLIPTA [Concomitant]
     Active Substance: FLUTICASONE FUROATE\VILANTEROL TRIFENATATE
  3. DEXFERRUM [Concomitant]
     Active Substance: IRON DEXTRAN
  4. BOTOX [Concomitant]
     Active Substance: ONABOTULINUMTOXINA
  5. IRON [Concomitant]
     Active Substance: IRON
  6. DULERA [Concomitant]
     Active Substance: FORMOTEROL FUMARATE DIHYDRATE\MOMETASONE FUROATE
  7. CYMBALTA [Concomitant]
     Active Substance: DULOXETINE HYDROCHLORIDE
  8. TESSALON [Concomitant]
     Active Substance: BENZONATATE
  9. CYANOCOBALAMIN. [Concomitant]
     Active Substance: CYANOCOBALAMIN
  10. SYMBICORT [Concomitant]
     Active Substance: BUDESONIDE\FORMOTEROL FUMARATE DIHYDRATE
  11. PREDNISONE. [Concomitant]
     Active Substance: PREDNISONE
  12. SYNTHROID [Concomitant]
     Active Substance: LEVOTHYROXINE SODIUM
  13. ZEGERID                            /00661201/ [Concomitant]
     Active Substance: OMEPRAZOLE
  14. LEVOTHYROXINE. [Concomitant]
     Active Substance: LEVOTHYROXINE
  15. ALVESCO [Concomitant]
     Active Substance: CICLESONIDE
  16. COMBIVENT RESPIMAT [Concomitant]
     Active Substance: ALBUTEROL SULFATE\IPRATROPIUM BROMIDE
  17. XYREM [Suspect]
     Active Substance: SODIUM OXYBATE
     Indication: NARCOLEPSY
     Dosage: 2.25G, BID
     Route: 048
     Dates: start: 201506, end: 201506
  18. VERAPAMIL [Concomitant]
     Active Substance: VERAPAMIL HYDROCHLORIDE
  19. DOLOBID [Concomitant]
     Active Substance: DIFLUNISAL
  20. VITAMIN D3 [Concomitant]
     Active Substance: CHOLECALCIFEROL
  21. AMITRIPTYLINE HCL [Concomitant]
     Active Substance: AMITRIPTYLINE
  22. ZEGERID                            /00661201/ [Concomitant]
     Active Substance: OMEPRAZOLE
  23. NYSTATIN. [Concomitant]
     Active Substance: NYSTATIN
  24. FIORICET [Concomitant]
     Active Substance: ACETAMINOPHEN\BUTALBITAL\CAFFEINE
  25. VITAMIN D                          /00107901/ [Concomitant]
     Active Substance: ERGOCALCIFEROL
  26. VERAPAMIL [Concomitant]
     Active Substance: VERAPAMIL HYDROCHLORIDE
  27. XYREM [Suspect]
     Active Substance: SODIUM OXYBATE
     Dosage: DOSE ADJUSTMENTS
     Route: 048
     Dates: start: 201506, end: 201703
  28. DILAUDID [Concomitant]
     Active Substance: HYDROMORPHONE HYDROCHLORIDE
  29. LYRICA [Concomitant]
     Active Substance: PREGABALIN
  30. MAXALT-MLT [Concomitant]
     Active Substance: RIZATRIPTAN BENZOATE
  31. XOPENEX HFA [Concomitant]
     Active Substance: LEVALBUTEROL TARTRATE
  32. LINZESS [Concomitant]
     Active Substance: LINACLOTIDE
  33. DIFLUCAN [Concomitant]
     Active Substance: FLUCONAZOLE
  34. ZOLPIDEM TARTRATE. [Concomitant]
     Active Substance: ZOLPIDEM TARTRATE
  35. XYREM [Suspect]
     Active Substance: SODIUM OXYBATE
     Dosage: 3 G, BID
     Route: 048
     Dates: start: 201703
  36. DYMISTA [Concomitant]
     Active Substance: AZELASTINE HYDROCHLORIDE\FLUTICASONE PROPIONATE
  37. COENZYME Q10 [Concomitant]
     Active Substance: UBIDECARENONE
  38. LASIX [Concomitant]
     Active Substance: FUROSEMIDE
  39. DUONEB [Concomitant]
     Active Substance: ALBUTEROL SULFATE\IPRATROPIUM BROMIDE
  40. AMBIEN [Concomitant]
     Active Substance: ZOLPIDEM TARTRATE
  41. VITAMIN B12 [Concomitant]
     Active Substance: CYANOCOBALAMIN
  42. AMITIZA [Concomitant]
     Active Substance: LUBIPROSTONE
  43. CLARITIN-D NOS [Concomitant]
     Active Substance: LORATADINE\PSEUDOEPHEDRINE SULFATE

REACTIONS (2)
  - Dental implantation [Unknown]
  - Pain [Unknown]

NARRATIVE: CASE EVENT DATE: 20170818
